FAERS Safety Report 7966328-3 (Version None)
Quarter: 2011Q4

REPORT INFORMATION
  Report Type: 
  Country: None (occurrence: None)
  Receive Date: 20111208
  Receipt Date: 20111205
  Transmission Date: 20120403
  Serious: Yes (Hospitalization, Other)
  Sender: FDA-Public Use
  Company Number: HK-ABBOTT-10P-075-0684547-00

PATIENT
  Age: 54 Year
  Sex: Male

DRUGS (3)
  1. HUMIRA [Suspect]
     Indication: PSORIASIS
     Dosage: AT WEEK 0
     Route: 058
  2. HUMIRA [Suspect]
     Dates: start: 20100401, end: 20101001
  3. HUMIRA [Suspect]

REACTIONS (1)
  - DISSEMINATED TUBERCULOSIS [None]
